FAERS Safety Report 8426882-4 (Version None)
Quarter: 2012Q2

REPORT INFORMATION
  Report Type: 
  Country: None (occurrence: None)
  Receive Date: 20120531
  Receipt Date: 20120522
  Transmission Date: 20120825
  Serious: Yes (Other)
  Sender: FDA-Public Use
  Company Number: 2012SP027554

PATIENT
  Sex: Male

DRUGS (4)
  1. VICTRELIS [Suspect]
     Indication: HEPATITIS C
     Dates: start: 20120331
  2. RIBAVIRIN [Suspect]
     Indication: HEPATITIS C
     Dosage: QAM; QPM ; QAM ; QPM ; QAM; QPM
     Dates: start: 20120303
  3. RIBAVIRIN [Suspect]
     Indication: HEPATITIS C
     Dosage: QAM; QPM ; QAM ; QPM ; QAM; QPM
     Dates: start: 20120303
  4. PEG-INTRON [Suspect]
     Indication: HEPATITIS C
     Dates: start: 20120303

REACTIONS (3)
  - WHITE BLOOD CELL COUNT DECREASED [None]
  - LOSS OF CONSCIOUSNESS [None]
  - HAEMOGLOBIN DECREASED [None]
